FAERS Safety Report 7392657-0 (Version None)
Quarter: 2011Q1

REPORT INFORMATION
  Report Type: 
  Country: None (occurrence: None)
  Receive Date: 20110330
  Receipt Date: 20110330
  Transmission Date: 20110831
  Serious: Yes (Hospitalization)
  Sender: FDA-Public Use
  Company Number: None

PATIENT
  Age: 36 Year
  Sex: Female

DRUGS (1)
  1. REBIF [Suspect]

REACTIONS (5)
  - DYSPHAGIA [None]
  - ANXIETY [None]
  - THROAT TIGHTNESS [None]
  - TREMOR [None]
  - PALPITATIONS [None]
